FAERS Safety Report 7290373-7 (Version None)
Quarter: 2011Q1

REPORT INFORMATION
  Report Type: 
  Country: None (occurrence: None)
  Receive Date: 20110208
  Receipt Date: 20110208
  Transmission Date: 20110831
  Serious: Yes (Life-Threatening, Hospitalization)
  Sender: FDA-Public Use
  Company Number: None

PATIENT
  Age: 22 Year
  Sex: Male
  Weight: 74.8435 kg

DRUGS (1)
  1. KEFLEX [Suspect]
     Indication: OTITIS MEDIA
     Dosage: PO
     Route: 048
     Dates: start: 20050101, end: 20050115

REACTIONS (6)
  - DYSPNOEA [None]
  - APLASTIC ANAEMIA [None]
  - ORAL PAIN [None]
  - EAR PAIN [None]
  - COAGULOPATHY [None]
  - ECCHYMOSIS [None]
